FAERS Safety Report 8773634 (Version 1)
Quarter: 2012Q4

REPORT INFORMATION
  Report Type: 
  Country: FR (occurrence: FR)
  Receive Date: 20120907
  Receipt Date: 20120907
  Transmission Date: 20130627
  Serious: Yes (Death, Life-Threatening, Hospitalization)
  Sender: FDA-Public Use
  Company Number: PHHY2012FR076379

PATIENT
  Age: 45 Year
  Sex: Male
  Weight: 71.5 kg

DRUGS (1)
  1. ZOMETA [Suspect]
     Dosage: 4 mg, UNK
     Dates: start: 20111028

REACTIONS (9)
  - Neoplasm progression [Fatal]
  - Malignant neoplasm progression [Fatal]
  - Metastases to lung [Fatal]
  - Metastases to central nervous system [Fatal]
  - Metastases to lymph nodes [Fatal]
  - Metastases to bone [Fatal]
  - General physical health deterioration [Unknown]
  - Brain oedema [Unknown]
  - Hypocalcaemia [Unknown]
